FAERS Safety Report 7126393-2 (Version None)
Quarter: 2010Q4

REPORT INFORMATION
  Report Type: 
  Country: None (occurrence: None)
  Receive Date: 20101129
  Receipt Date: 20101118
  Transmission Date: 20110411
  Serious: Yes (Other)
  Sender: FDA-Public Use
  Company Number: GB-JNJFOC-20101106665

PATIENT
  Age: 13 Year
  Sex: Male

DRUGS (3)
  1. CONCERTA [Suspect]
     Indication: ILL-DEFINED DISORDER
     Route: 048
  2. CONCERTA [Suspect]
     Route: 048
  3. CONCERTA [Suspect]
     Route: 048

REACTIONS (2)
  - ADVERSE EVENT [None]
  - DRUG DIVERSION [None]
